FAERS Safety Report 21448557 (Version 1)
Quarter: 2022Q4

REPORT INFORMATION
  Report Type: Spontaneous
  Country: US (occurrence: US)
  Receive Date: 20221013
  Receipt Date: 20221013
  Transmission Date: 20230113
  Serious: Yes (Hospitalization, Other)
  Sender: FDA-Public Use
  Company Number: US-CELGENE-USA-20210803637

PATIENT
  Age: 61 Year
  Sex: Female
  Weight: 54.88 kg

DRUGS (23)
  1. AZACITIDINE [Suspect]
     Active Substance: AZACITIDINE
     Indication: Myelodysplastic syndrome
     Dosage: FREQUENCY TEXT: DAYS 1-5, 8, AND 9 OF EACH 28-DAY?75 MILLIGRAM/SQ. METER, 75MG/M2 7 DAYS WITHIN THE
     Route: 058
     Dates: start: 20210712, end: 20210720
  2. AZACITIDINE [Suspect]
     Active Substance: AZACITIDINE
     Dosage: 75MG/M2 7 DAYS WITHIN THE FIRST 9 CALENDER DAYS OF EACH 28-DAY CYCLE,EVERY 1 DAYS
     Route: 058
     Dates: start: 20210817
  3. VENETOCLAX [Suspect]
     Active Substance: VENETOCLAX
     Indication: Myelodysplastic syndrome
     Dosage: DAYS 1-14 OF EACH 28-DAY CYCLE, EVERY 1 DAYS; DAYS 1-14 OF EACH 28-DAY CYCLE
     Route: 048
     Dates: start: 20210712, end: 20210725
  4. VENETOCLAX [Suspect]
     Active Substance: VENETOCLAX
     Dosage: DAYS 1-14 OF EACH 28-DAY CYCLE, EVERY 1 DAYS; DAYS 1-14 OF EACH 28-DAY CYCLE
     Route: 048
     Dates: start: 20210817
  5. LAMICTAL [Concomitant]
     Active Substance: LAMOTRIGINE
     Indication: Epilepsy
     Route: 048
     Dates: start: 202103
  6. LACOSAMIDE [Concomitant]
     Active Substance: LACOSAMIDE
     Indication: Epilepsy
     Dosage: 400 MILLIGRAM
     Route: 065
     Dates: start: 20210624
  7. ACYCLOVIR [Concomitant]
     Active Substance: ACYCLOVIR
     Indication: Infection prophylaxis
     Dosage: 800 MILLIGRAM
     Route: 048
     Dates: start: 20210628, end: 20210716
  8. ACYCLOVIR [Concomitant]
     Active Substance: ACYCLOVIR
     Dosage: 1000 MILLIGRAM
     Route: 048
     Dates: start: 20210721
  9. VORICONAZOLE [Concomitant]
     Active Substance: VORICONAZOLE
     Indication: Infection prophylaxis
     Dosage: 200 MILLIGRAM
     Route: 048
     Dates: start: 20210628, end: 20210716
  10. VORICONAZOLE [Concomitant]
     Active Substance: VORICONAZOLE
     Dosage: 200 MILLIGRAM
     Route: 048
     Dates: start: 20210721, end: 20210730
  11. LEVOFLOXACIN [Concomitant]
     Active Substance: LEVOFLOXACIN
     Indication: Infection prophylaxis
     Dosage: 1000 MILLIGRAM EVERY DAY
     Route: 048
     Dates: start: 20210628, end: 20210716
  12. LEVOFLOXACIN [Concomitant]
     Active Substance: LEVOFLOXACIN
     Dosage: 1000 MILLIGRAM EVERY DAY
     Route: 065
     Dates: start: 20210721
  13. Calcium carbonate-vitamin D3 [Concomitant]
     Indication: Supplementation therapy
     Dosage: 600-1500 MG
     Route: 048
     Dates: start: 2021
  14. ZOFRAN [Concomitant]
     Active Substance: ONDANSETRON HYDROCHLORIDE
     Indication: Prophylaxis of nausea and vomiting
     Dosage: FREQUENCY TEXT: 1 AS REQUIRED?200 MILLIGRAM
     Route: 048
     Dates: start: 20210712
  15. IMODIUM [Concomitant]
     Active Substance: LOPERAMIDE HYDROCHLORIDE
     Indication: Diarrhoea
     Dosage: FREQUENCY TEXT: AS REQUIRED
     Route: 048
     Dates: start: 20210713
  16. IMODIUM [Concomitant]
     Active Substance: LOPERAMIDE HYDROCHLORIDE
     Indication: Prophylaxis
  17. DEXAMETHASONE [Concomitant]
     Active Substance: DEXAMETHASONE
     Indication: Premedication
     Dosage: FREQUENCY TEXT: AS REQUIRED, GIVEN WITH TREATMENT
     Route: 042
     Dates: start: 20210712, end: 20210712
  18. DEXAMETHASONE [Concomitant]
     Active Substance: DEXAMETHASONE
     Dosage: FREQUENCY TEXT: AS REQUIRED, GIVEN WITH TREATMENT(8MG)
     Route: 042
     Dates: start: 20210713
  19. PALONOSETRON [Concomitant]
     Active Substance: PALONOSETRON
     Indication: Premedication
     Dosage: FREQUENCY TEXT: AS REQUIRED, GIVEN WITH TREATMENT
     Route: 042
     Dates: start: 20210712
  20. APREPITANT [Concomitant]
     Active Substance: APREPITANT
     Indication: Premedication
     Dosage: FREQUENCY TEXT: AS REQUIRED, GIVEN WITH TREATMENT
     Route: 042
     Dates: start: 20210712
  21. GRANISETRON [Concomitant]
     Active Substance: GRANISETRON
     Indication: Prophylaxis of nausea and vomiting
     Dosage: FREQUENCY TEXT: AS REQUIRED, GIVEN WITH TREATMENT
     Route: 042
     Dates: start: 20210713
  22. DIPHENHYDRAMINE HYDROCHLORIDE\LIDOCAINE HYDROCHLORIDE\NYSTATIN [Concomitant]
     Active Substance: DIPHENHYDRAMINE HYDROCHLORIDE\LIDOCAINE HYDROCHLORIDE\NYSTATIN
     Indication: Stomatitis
     Route: 065
     Dates: start: 20210730
  23. DIFLUCAN [Concomitant]
     Active Substance: FLUCONAZOLE
     Indication: Antifungal prophylaxis
     Route: 065
     Dates: start: 20210730

REACTIONS (1)
  - Febrile neutropenia [Recovered/Resolved]

NARRATIVE: CASE EVENT DATE: 20210803
